FAERS Safety Report 4686832-3 (Version None)
Quarter: 2005Q2

REPORT INFORMATION
  Report Type: 
  Country: None (occurrence: None)
  Receive Date: 20050608
  Receipt Date: 20050523
  Transmission Date: 20051028
  Serious: Yes (Hospitalization)
  Sender: FDA-Public Use
  Company Number: 215075

PATIENT
  Sex: Female

DRUGS (10)
  1. HERCEPTIN [Suspect]
     Indication: BREAST CANCER
     Dosage: 4 MG/KG, 1/WEEK, INTRAVENOUS
     Route: 042
     Dates: start: 20050421
  2. DOCETAXEL (DOCETAXEL) [Suspect]
     Indication: BREAST CANCER METASTATIC
     Dosage: 100 MG/M2, Q3W, INTRAVENOUS
     Route: 042
     Dates: start: 20050421
  3. DOCUSATE SODIUM [Concomitant]
  4. ZESTORETIC [Concomitant]
  5. TOLTERODINE (TOLTERODINE TARTRATE) [Concomitant]
  6. ESCITALOPRAM (ESCITALOPRAM OXALATE) [Concomitant]
  7. MORPHINE SULFATE [Concomitant]
  8. OMEPRAZOLE [Concomitant]
  9. MOVICOL (POLYETHYLENE GLYCOL, ELECTROLYTES NOS) [Concomitant]
  10. GABAPENTIN [Concomitant]

REACTIONS (3)
  - LEUKOPENIA [None]
  - NEUTROPENIA [None]
  - PYREXIA [None]
